FAERS Safety Report 21027226 (Version 1)
Quarter: 2022Q2

REPORT INFORMATION
  Report Type: Spontaneous
  Country: ES (occurrence: ES)
  Receive Date: 20220630
  Receipt Date: 20220630
  Transmission Date: 20220720
  Serious: Yes (Life-Threatening, Hospitalization, Other)
  Sender: FDA-Public Use
  Company Number: None

PATIENT

DRUGS (6)
  1. ARTESUNATE [Suspect]
     Active Substance: ARTESUNATE
     Indication: Malaria
     Dosage: UNK
     Route: 048
     Dates: start: 20211217, end: 20211217
  2. PYRIMETHAMINE [Suspect]
     Active Substance: PYRIMETHAMINE
     Indication: Prophylaxis
     Dosage: UNK
     Route: 048
     Dates: start: 20211122, end: 20211217
  3. ATOVAQUONE\PROGUANIL HYDROCHLORIDE [Suspect]
     Active Substance: ATOVAQUONE\PROGUANIL HYDROCHLORIDE
     Indication: Prophylaxis
     Dosage: UNK
     Route: 048
     Dates: start: 20211120, end: 20211122
  4. SULFAMETHOXYPYRIDAZINE [Suspect]
     Active Substance: SULFAMETHOXYPYRIDAZINE
     Indication: Malaria
     Dosage: UNK
     Route: 048
     Dates: start: 20211217, end: 20211217
  5. SULFADOXINE [Suspect]
     Active Substance: SULFADOXINE
     Indication: Prophylaxis
     Dosage: UNK
     Route: 048
     Dates: start: 20211122, end: 20211217
  6. PYRIMETHAMINE [Concomitant]
     Active Substance: PYRIMETHAMINE
     Indication: Malaria
     Dosage: UNK
     Route: 048
     Dates: start: 20211217, end: 20211217

REACTIONS (1)
  - Toxic epidermal necrolysis [Recovered/Resolved]

NARRATIVE: CASE EVENT DATE: 20211218
